FAERS Safety Report 9940454 (Version 3)
Quarter: 2014Q3

REPORT INFORMATION
  Report Type: Spontaneous
  Country: FR (occurrence: FR)
  Receive Date: 20140303
  Receipt Date: 20140709
  Transmission Date: 20150326
  Serious: Yes (Other)
  Sender: FDA-Public Use
  Company Number: FR-PFIZER INC-2014054805

PATIENT
  Age: 52 Year
  Sex: Male

DRUGS (7)
  1. GENOTONORM MINIQUICK [Suspect]
     Active Substance: SOMATROPIN
     Dosage: 0.3 MG, DAILY
     Route: 058
  2. UVEDOSE [Suspect]
     Active Substance: CHOLECALCIFEROL
     Dosage: 1 DF, EVERY 2 MONTHS
     Route: 048
  3. PANTESTON [Suspect]
     Active Substance: TESTOSTERONE UNDECANOATE
     Dosage: 40 MG, DAILY
     Route: 048
  4. LEVOTHYROX [Suspect]
     Active Substance: LEVOTHYROXINE
     Dosage: 125 UG, DAILY
     Route: 048
  5. VITAMINES-B-DELAGRANGE [Suspect]
     Active Substance: CYANOCOBALAMIN
     Dosage: 1 DF, MONTHLY
     Route: 030
  6. CRESTOR [Suspect]
     Active Substance: ROSUVASTATIN CALCIUM
     Dosage: 5 MG, DAILY
     Route: 048
  7. ATRIPLA [Suspect]
     Active Substance: EFAVIRENZ\EMTRICITABINE\TENOFOVIR DISOPROXIL FUMARATE
     Indication: HIV INFECTION
     Dosage: 1 DF, DAILY
     Route: 048
     Dates: start: 20090706, end: 201401

REACTIONS (2)
  - Hepatocellular injury [Recovered/Resolved]
  - Cholestasis [Recovered/Resolved]

NARRATIVE: CASE EVENT DATE: 20140108
